FAERS Safety Report 10986440 (Version 1)
Quarter: 2015Q2

REPORT INFORMATION
  Report Type: Spontaneous
  Country: CA (occurrence: None)
  Receive Date: 20150403
  Receipt Date: 20150403
  Transmission Date: 20150821
  Serious: Yes (Other)
  Sender: FDA-Public Use
  Company Number: None

PATIENT
  Age: 70 Year
  Sex: Female
  Weight: 77.11 kg

DRUGS (4)
  1. LABETALOL [Concomitant]
     Active Substance: LABETALOL\LABETALOL HYDROCHLORIDE
  2. LABETALOL [Suspect]
     Active Substance: LABETALOL\LABETALOL HYDROCHLORIDE
     Indication: HYPERTENSION
     Dosage: 2 PILLS A DAY
     Route: 048
     Dates: start: 20141119, end: 20150401
  3. CANDESARTAN [Concomitant]
     Active Substance: CANDESARTAN
  4. NORTRIPTYLINE [Concomitant]
     Active Substance: NORTRIPTYLINE

REACTIONS (22)
  - Chest pain [None]
  - Myalgia [None]
  - Temporomandibular joint syndrome [None]
  - Joint swelling [None]
  - Muscle swelling [None]
  - Renal disorder [None]
  - No therapeutic response [None]
  - Dyspepsia [None]
  - Gastrooesophageal reflux disease [None]
  - Pain [None]
  - Peripheral swelling [None]
  - Renal haemorrhage [None]
  - Blood urine present [None]
  - Painful respiration [None]
  - Musculoskeletal disorder [None]
  - Drug ineffective [None]
  - Gastrointestinal haemorrhage [None]
  - Upper limb fracture [None]
  - Muscle spasms [None]
  - Cough [None]
  - Rib fracture [None]
  - Arthropathy [None]

NARRATIVE: CASE EVENT DATE: 20141119
